FAERS Safety Report 11958406 (Version 3)
Quarter: 2016Q1

REPORT INFORMATION
  Report Type: Spontaneous
  Country: US (occurrence: US)
  Receive Date: 20160126
  Receipt Date: 20160318
  Transmission Date: 20160526
  Serious: No
  Sender: FDA-Public Use
  Company Number: PHEH2016US001894

PATIENT
  Age: 21 Year
  Sex: Female
  Weight: 81.63 kg

DRUGS (2)
  1. ESTRADIOL. [Suspect]
     Active Substance: ESTRADIOL
     Indication: HORMONE THERAPY
     Dosage: 1 DF (0.1 MG), EVERY 3 DAYS
     Route: 062
     Dates: start: 201512
  2. SPIROLACTON [Concomitant]
     Indication: BLOOD TESTOSTERONE
     Dosage: 100 MG, QD
     Route: 065
     Dates: start: 201512

REACTIONS (2)
  - Product use issue [Unknown]
  - Inappropriate schedule of drug administration [Unknown]

NARRATIVE: CASE EVENT DATE: 201512
